FAERS Safety Report 19060732 (Version 2)
Quarter: 2021Q2

REPORT INFORMATION
  Report Type: Spontaneous
  Country: CA (occurrence: CA)
  Receive Date: 20210326
  Receipt Date: 20210518
  Transmission Date: 20210717
  Serious: Yes (Hospitalization, Other)
  Sender: FDA-Public Use
  Company Number: CA-AUROBINDO-AUR-APL-2021-011836

PATIENT
  Age: 59 Year
  Sex: Male

DRUGS (1)
  1. AURO?SERTRALINE CAPSULES [Suspect]
     Active Substance: SERTRALINE HYDROCHLORIDE
     Indication: DEPRESSION
     Dosage: 25 MILLIGRAM, ONCE A DAY
     Route: 048

REACTIONS (2)
  - Hospitalisation [Unknown]
  - Hypokinesia [Unknown]
